FAERS Safety Report 4540905-4 (Version None)
Quarter: 2004Q4

REPORT INFORMATION
  Report Type: 
  Country: None (occurrence: None)
  Receive Date: 20041229
  Receipt Date: 20040206
  Transmission Date: 20050328
  Serious: Yes (Other)
  Sender: FDA-Public Use
  Company Number: GB-GLAXOSMITHKLINE-B0322539A

PATIENT
  Age: 90 Year
  Sex: Female
  Weight: 50 kg

DRUGS (7)
  1. DIGOXIN [Suspect]
     Indication: ATRIAL FIBRILLATION
     Dosage: 125MCG UNKNOWN
     Route: 048
     Dates: start: 20030121, end: 20040120
  2. AMIODARONE HCL [Suspect]
     Dosage: 200MG SEE DOSAGE TEXT
     Route: 048
     Dates: start: 20030323, end: 20040120
  3. CHLORAMPHENICOL [Concomitant]
     Indication: CONJUNCTIVITIS
     Route: 047
     Dates: end: 20040114
  4. NEOMYCIN [Concomitant]
     Indication: CONJUNCTIVITIS
     Route: 047
     Dates: start: 20040114, end: 20040119
  5. FRUSEMIDE [Concomitant]
     Indication: PULMONARY OEDEMA
     Dosage: 20MG PER DAY
     Route: 048
  6. FYBOGEL [Concomitant]
     Indication: DIARRHOEA
     Dosage: 1SAC TWICE PER DAY
     Route: 048
  7. ASPIRIN [Concomitant]
     Indication: ANGINA PECTORIS
     Dosage: 75MG PER DAY
     Route: 048

REACTIONS (6)
  - CARDIOACTIVE DRUG LEVEL INCREASED [None]
  - CONFUSIONAL STATE [None]
  - CONTUSION [None]
  - DEHYDRATION [None]
  - THERAPEUTIC AGENT TOXICITY [None]
  - THROMBOCYTOPENIA [None]
